FAERS Safety Report 22388437 (Version 1)
Quarter: 2023Q2

REPORT INFORMATION
  Report Type: Report from Study
  Country: US (occurrence: None)
  Receive Date: 20230531
  Receipt Date: 20230531
  Transmission Date: 20230722
  Serious: Yes (Other)
  Sender: FDA-Public Use
  Company Number: 2023A121214

PATIENT
  Sex: Female

DRUGS (1)
  1. BRILINTA [Suspect]
     Active Substance: TICAGRELOR
     Route: 048

REACTIONS (6)
  - Deep vein thrombosis [Unknown]
  - Ophthalmic vascular thrombosis [Unknown]
  - Systemic lupus erythematosus [Unknown]
  - Inflammation [Unknown]
  - Thrombosis [Unknown]
  - Ill-defined disorder [Unknown]
